FAERS Safety Report 13744634 (Version 1)
Quarter: 2017Q3

REPORT INFORMATION
  Report Type: Other
  Country: GB (occurrence: GB)
  Receive Date: 20170712
  Receipt Date: 20170712
  Transmission Date: 20171127
  Serious: Yes (Death, Life-Threatening, Hospitalization, Other)
  Sender: FDA-Public Use
  Company Number: GB-MACLEODS PHARMACEUTICALS US LTD-MAC2017005051

PATIENT

DRUGS (7)
  1. OMEPRAZOLE. [Concomitant]
     Active Substance: OMEPRAZOLE
     Indication: PRODUCT USED FOR UNKNOWN INDICATION
     Dosage: 20 MG, QD
     Route: 065
  2. PARACETAMOL [Concomitant]
     Active Substance: ACETAMINOPHEN
     Indication: PRODUCT USED FOR UNKNOWN INDICATION
     Dosage: 1 G, QID1 G, QID (NEWLY STARTED)
     Route: 065
     Dates: start: 20170426
  3. OLANZAPINE. [Suspect]
     Active Substance: OLANZAPINE
     Indication: ACUTE STRESS DISORDER
     Dosage: 5 MG, BID
     Route: 048
     Dates: start: 20170426, end: 20170507
  4. SERTRALINE [Concomitant]
     Active Substance: SERTRALINE HYDROCHLORIDE
     Indication: PRODUCT USED FOR UNKNOWN INDICATION
     Dosage: 150 MG, QD (INCREASED DOSE AFTER ADMISSION FOR SUICIDE ATTEMPT)
     Route: 065
  5. CELECOXIB. [Suspect]
     Active Substance: CELECOXIB
     Indication: PAIN
     Dosage: 200 MG, BID
     Route: 048
     Dates: start: 20170426, end: 20170507
  6. OXYCODONE [Concomitant]
     Active Substance: OXYCODONE
     Dosage: 20 MG, BID NEWLY STARTED(SUSTAINED RELEASE)
     Route: 065
     Dates: start: 20170426
  7. OXYCODONE [Concomitant]
     Active Substance: OXYCODONE
     Indication: PRODUCT USED FOR UNKNOWN INDICATION
     Dosage: 3 HOURLY. NEWLY STARTED
     Route: 065
     Dates: start: 20170426

REACTIONS (5)
  - Circulatory collapse [Recovered/Resolved]
  - Syncope [Recovered/Resolved]
  - Chest pain [Unknown]
  - Respiratory failure [Fatal]
  - Pulmonary embolism [Fatal]

NARRATIVE: CASE EVENT DATE: 20170503
